FAERS Safety Report 14296853 (Version 1)
Quarter: 2017Q4

REPORT INFORMATION
  Report Type: Spontaneous
  Country: IT (occurrence: IT)
  Receive Date: 20171218
  Receipt Date: 20171218
  Transmission Date: 20180321
  Serious: Yes (Other)
  Sender: FDA-Public Use
  Company Number: IT-CIPLA LTD.-2017IT24253

PATIENT

DRUGS (1)
  1. LEVOFLOXACIN. [Suspect]
     Active Substance: LEVOFLOXACIN
     Indication: PNEUMONIA
     Dosage: 1 DF, AS NECESSARY
     Route: 048
     Dates: start: 20170701, end: 20170705

REACTIONS (3)
  - Tendon injury [Unknown]
  - Oedema [Unknown]
  - Ecchymosis [Unknown]

NARRATIVE: CASE EVENT DATE: 20170714
